FAERS Safety Report 5363568-7 (Version None)
Quarter: 2007Q2

REPORT INFORMATION
  Report Type: 
  Country: None (occurrence: None)
  Receive Date: 20070620
  Receipt Date: 20070614
  Transmission Date: 20071010
  Serious: Yes (Other)
  Sender: FDA-Public Use
  Company Number: US-ASTRAZENECA-2007UW14273

PATIENT
  Age: 80 Year
  Sex: Female
  Weight: 73.5 kg

DRUGS (8)
  1. NEXIUM [Suspect]
     Indication: GASTROOESOPHAGEAL REFLUX DISEASE
     Route: 048
  2. NEXIUM [Suspect]
     Indication: STOMACH DISCOMFORT
     Route: 048
  3. NEXIUM [Suspect]
     Indication: ABDOMINAL PAIN
     Route: 048
  4. ACETYLSALICYLIC ACID SRT [Concomitant]
  5. HYDROCHLOROTHIAZIDE [Concomitant]
  6. STOOL SOFTENER [Concomitant]
  7. ZOLOFT [Concomitant]
  8. EYE MEDICATION [Concomitant]

REACTIONS (3)
  - BONE DENSITY DECREASED [None]
  - NEUROPATHY [None]
  - OSTEOPENIA [None]
